FAERS Safety Report 10438043 (Version 1)
Quarter: 2014Q3

REPORT INFORMATION
  Report Type: Spontaneous
  Country: US (occurrence: US)
  Receive Date: 20140908
  Receipt Date: 20140908
  Transmission Date: 20150326
  Serious: No
  Sender: FDA-Public Use
  Company Number: US-BRISTOL-MYERS SQUIBB COMPANY-20544904

PATIENT
  Age: 74 Year
  Sex: Female
  Weight: 67.12 kg

DRUGS (9)
  1. ABILIFY [Suspect]
     Active Substance: ARIPIPRAZOLE
     Indication: DEPRESSION
  2. FLUOXETINE [Concomitant]
     Active Substance: FLUOXETINE\FLUOXETINE HYDROCHLORIDE
  3. VITAMIN B12 [Concomitant]
     Active Substance: CYANOCOBALAMIN
     Dosage: QAM.
  4. CLONIDINE. [Concomitant]
     Active Substance: CLONIDINE
     Dosage: QHS
  5. METFORMIN [Concomitant]
     Active Substance: METFORMIN HYDROCHLORIDE
  6. CRESTOR [Concomitant]
     Active Substance: ROSUVASTATIN CALCIUM
     Dosage: QPM;
  7. ATIVAN [Concomitant]
     Active Substance: LORAZEPAM
  8. FISH OIL [Concomitant]
     Active Substance: FISH OIL
     Dosage: QAM
  9. DILTIAZEM HCL [Concomitant]
     Active Substance: DILTIAZEM HYDROCHLORIDE
     Dosage: QAM;

REACTIONS (2)
  - Drug ineffective [Unknown]
  - Asthenia [Unknown]
